FAERS Safety Report 4720806-9 (Version None)
Quarter: 2005Q3

REPORT INFORMATION
  Report Type: 
  Country: None (occurrence: None)
  Receive Date: 20050719
  Receipt Date: 20050705
  Transmission Date: 20060218
  Serious: Yes (Hospitalization, Other)
  Sender: FDA-Public Use
  Company Number: 2004097390

PATIENT
  Age: 61 Year
  Sex: Female
  Weight: 71.2147 kg

DRUGS (10)
  1. DETROL LA [Suspect]
     Indication: BLADDER DISORDER
     Dosage: 4 MG (4 MG, 1 IN 1 D), ORAL
     Route: 048
     Dates: start: 20040311, end: 20040313
  2. TRAZODONE (TRAZODONE) [Concomitant]
  3. LORAZEPAM [Concomitant]
  4. MOTRIN [Concomitant]
  5. DARVOCET-N 100 [Concomitant]
  6. PREMARIN [Concomitant]
  7. SOMA [Concomitant]
  8. ALPRAZOLAM [Concomitant]
  9. HYOSCINE HBR HYT [Concomitant]
  10. OTHER NERVOUS SYSTEM DRUGS (OTHER NERVOUS SYSTEM DRUGS) [Concomitant]

REACTIONS (59)
  - ABDOMINAL PAIN LOWER [None]
  - AMNESIA [None]
  - ANION GAP DECREASED [None]
  - ANKLE FRACTURE [None]
  - ARTHRALGIA [None]
  - BLADDER PAIN [None]
  - BLADDER PROLAPSE [None]
  - BLOOD CHOLESTEROL INCREASED [None]
  - BLOOD OSMOLARITY DECREASED [None]
  - BLOOD URINE PRESENT [None]
  - BREAST MASS [None]
  - CHEST PAIN [None]
  - CONDITION AGGRAVATED [None]
  - CYSTOCELE [None]
  - DISCOMFORT [None]
  - EOSINOPHIL PERCENTAGE DECREASED [None]
  - EXCORIATION [None]
  - FAECES DISCOLOURED [None]
  - FALL [None]
  - FATIGUE [None]
  - FIBROCYSTIC BREAST DISEASE [None]
  - FRACTURE [None]
  - GINGIVAL PAIN [None]
  - GLUCOSE URINE PRESENT [None]
  - HAEMATOCHEZIA [None]
  - HEADACHE [None]
  - HEART RATE INCREASED [None]
  - HIATUS HERNIA [None]
  - JOINT INJURY [None]
  - JOINT STIFFNESS [None]
  - JOINT SWELLING [None]
  - LOW DENSITY LIPOPROTEIN INCREASED [None]
  - LYMPHADENOPATHY [None]
  - LYMPHOCYTE PERCENTAGE DECREASED [None]
  - MEAN CELL HAEMOGLOBIN CONCENTRATION INCREASED [None]
  - MEAN CELL VOLUME INCREASED [None]
  - MEAN PLATELET VOLUME INCREASED [None]
  - MUSCLE SPASMS [None]
  - MUSCULOSKELETAL STIFFNESS [None]
  - NAUSEA [None]
  - NECK PAIN [None]
  - NIGHT SWEATS [None]
  - NODULE [None]
  - PAIN [None]
  - PAIN IN EXTREMITY [None]
  - PALPITATIONS [None]
  - PHARYNGOLARYNGEAL PAIN [None]
  - PYREXIA [None]
  - RASH [None]
  - REFUSAL OF TREATMENT BY PATIENT [None]
  - RHINORRHOEA [None]
  - SWELLING [None]
  - TINNITUS [None]
  - TOOTH DISORDER [None]
  - URINARY RETENTION [None]
  - URINE KETONE BODY PRESENT [None]
  - WALKING AID USER [None]
  - WEIGHT ABNORMAL [None]
  - WEIGHT DECREASED [None]
